FAERS Safety Report 8808051 (Version 2)
Quarter: 2012Q4

REPORT INFORMATION
  Report Type: Report from Study
  Country: JP (occurrence: JP)
  Receive Date: 20120925
  Receipt Date: 20121012
  Transmission Date: 20130627
  Serious: Yes (Life-Threatening, Hospitalization)
  Sender: FDA-Public Use
  Company Number: JP-BRISTOL-MYERS SQUIBB COMPANY-16960759

PATIENT
  Age: 72 Year
  Sex: Male
  Weight: 52 kg

DRUGS (1)
  1. SPRYCEL [Suspect]
     Indication: CHRONIC MYELOID LEUKAEMIA
     Dosage: 14Ap-26My09 80mg
27My09-10Nv10;23Dc09-2Fb10 60mg
24Fb-9Mr10 60mg 5/wk
10Mr-16Ag10 80mg 5/wk
     Route: 048
     Dates: start: 20090414

REACTIONS (1)
  - Guillain-Barre syndrome [Recovering/Resolving]
